FAERS Safety Report 17987719 (Version 1)
Quarter: 2020Q3

REPORT INFORMATION
  Report Type: Spontaneous
  Country: GB (occurrence: GB)
  Receive Date: 20200707
  Receipt Date: 20200707
  Transmission Date: 20201103
  Serious: Yes (Life-Threatening)
  Sender: FDA-Public Use
  Company Number: GB-TEVA-2020-GB-1795984

PATIENT
  Age: 58 Year
  Sex: Male
  Weight: 83 kg

DRUGS (14)
  1. INDAPAMIDE. [Suspect]
     Active Substance: INDAPAMIDE
     Dosage: 2.5 MILLIGRAM DAILY; MORNING
     Route: 048
     Dates: start: 20200605, end: 20200611
  2. COCODAMOL [Concomitant]
     Active Substance: ACETAMINOPHEN\CODEINE PHOSPHATE
  3. MEBEVERINE HYDROCHLORIDE [Concomitant]
     Active Substance: MEBEVERINE HYDROCHLORIDE
  4. LANSOPRAZOLE. [Concomitant]
     Active Substance: LANSOPRAZOLE
  5. ATORVASTATIN [Concomitant]
     Active Substance: ATORVASTATIN
  6. FELODIPINE. [Concomitant]
     Active Substance: FELODIPINE
  7. BECLOMETASONE [Concomitant]
     Active Substance: BECLOMETHASONE DIPROPIONATE
  8. FLUOXETINE [Concomitant]
     Active Substance: FLUOXETINE HYDROCHLORIDE
  9. ADCAL?D3 [Concomitant]
     Active Substance: CALCIUM CARBONATE\CHOLECALCIFEROL
  10. CLOPIDOGREL [Concomitant]
     Active Substance: CLOPIDOGREL BISULFATE
  11. CLOBETASOL [Concomitant]
     Active Substance: CLOBETASOL
  12. DERMOVATE [Concomitant]
     Active Substance: CLOBETASOL
  13. HYDROMOL EMOLLIENT [Concomitant]
  14. RAMIPRIL. [Concomitant]
     Active Substance: RAMIPRIL

REACTIONS (1)
  - Hyponatraemia [Recovering/Resolving]
